FAERS Safety Report 14107000 (Version 2)
Quarter: 2017Q4

REPORT INFORMATION
  Report Type: Spontaneous
  Country: IT (occurrence: IT)
  Receive Date: 20171019
  Receipt Date: 20171030
  Transmission Date: 20180321
  Serious: No
  Sender: FDA-Public Use
  Company Number: IT-MYLANLABS-2017M1065083

PATIENT
  Age: 86 Year
  Sex: Female

DRUGS (2)
  1. QUETIAPINE. [Suspect]
     Active Substance: QUETIAPINE
     Indication: BIPOLAR DISORDER
     Dosage: 75 MG TOTAL
     Route: 048
  2. CEFIXIME. [Concomitant]
     Active Substance: CEFIXIME
     Indication: PRODUCTIVE COUGH
     Dosage: 400 MG, UNK
     Route: 048
     Dates: start: 20170216

REACTIONS (4)
  - Confusional state [Recovered/Resolved]
  - Feeling jittery [Recovered/Resolved]
  - Drug administration error [Unknown]
  - Agitation [Recovered/Resolved]

NARRATIVE: CASE EVENT DATE: 20170224
